FAERS Safety Report 22639046 (Version 1)
Quarter: 2023Q2

REPORT INFORMATION
  Report Type: Spontaneous
  Country: US (occurrence: US)
  Receive Date: 20230626
  Receipt Date: 20230626
  Transmission Date: 20230721
  Serious: Yes (Other)
  Sender: FDA-Public Use
  Company Number: US-BEH-2023160134

PATIENT
  Age: 57 Year
  Sex: Male

DRUGS (8)
  1. IDELVION [Suspect]
     Active Substance: COAGULATION FACTOR IX RECOMBINANT HUMAN
     Indication: Factor IX deficiency
     Dosage: 3500 INTERNATIONAL UNIT, QW
     Route: 042
     Dates: start: 202210
  2. IDELVION [Suspect]
     Active Substance: COAGULATION FACTOR IX RECOMBINANT HUMAN
     Indication: Factor IX deficiency
     Dosage: 3500 INTERNATIONAL UNIT, QW
     Route: 042
     Dates: start: 202210
  3. IDELVION [Suspect]
     Active Substance: COAGULATION FACTOR IX RECOMBINANT HUMAN
     Indication: Haemorrhage prophylaxis
     Dosage: 3500 INTERNATIONAL UNIT, PRN, MAY REPEAT AS NEEDED AFTER 48 HRS
     Route: 042
     Dates: start: 202210
  4. IDELVION [Suspect]
     Active Substance: COAGULATION FACTOR IX RECOMBINANT HUMAN
     Indication: Haemorrhage prophylaxis
     Dosage: 3500 INTERNATIONAL UNIT, PRN, MAY REPEAT AS NEEDED AFTER 48 HRS
     Route: 042
     Dates: start: 202210
  5. IDELVION [Suspect]
     Active Substance: COAGULATION FACTOR IX RECOMBINANT HUMAN
     Dosage: 7000 INTERNATIONAL UNIT, PRN, MAY REPEAT AS NEEDED AFTER 48 HRS
     Route: 042
     Dates: start: 202210
  6. IDELVION [Suspect]
     Active Substance: COAGULATION FACTOR IX RECOMBINANT HUMAN
     Dosage: 7000 INTERNATIONAL UNIT, PRN, MAY REPEAT AS NEEDED AFTER 48 HRS
     Route: 042
     Dates: start: 202210
  7. IDELVION [Suspect]
     Active Substance: COAGULATION FACTOR IX RECOMBINANT HUMAN
     Dosage: 7000 INTERNATIONAL UNIT
     Route: 065
     Dates: start: 202305
  8. IDELVION [Suspect]
     Active Substance: COAGULATION FACTOR IX RECOMBINANT HUMAN
     Dosage: 7000 INTERNATIONAL UNIT
     Route: 065
     Dates: start: 202305

REACTIONS (2)
  - Haemarthrosis [Recovered/Resolved]
  - Cholecystostomy [Unknown]

NARRATIVE: CASE EVENT DATE: 20230501
